FAERS Safety Report 20276068 (Version 1)
Quarter: 2022Q1

REPORT INFORMATION
  Report Type: Spontaneous
  Country: US (occurrence: US)
  Receive Date: 20220102
  Receipt Date: 20220102
  Transmission Date: 20220423
  Serious: No
  Sender: FDA-Public Use
  Company Number: US-VIIV HEALTHCARE LIMITED-US2021262168

PATIENT
  Age: 48 Year
  Sex: Male

DRUGS (2)
  1. RILPIVIRINE [Suspect]
     Active Substance: RILPIVIRINE
     Indication: Product used for unknown indication
     Dosage: UNK UNK, Z (400MG CABOTEGRAVIR + 600MG RILPIVIRINE) 1 INJECTION MONTHLY
     Route: 042
  2. CABOTEGRAVIR [Suspect]
     Active Substance: CABOTEGRAVIR
     Indication: Product used for unknown indication
     Dosage: UNK UNK, Z (400MG CABOTEGRAVIR + 600MG RILPIVIRINE) 1 INJECTION MONTHLY
     Route: 042

REACTIONS (2)
  - Injection site extravasation [Unknown]
  - Patient dissatisfaction with treatment [Not Recovered/Not Resolved]

NARRATIVE: CASE EVENT DATE: 20211223
